FAERS Safety Report 6119117-9 (Version None)
Quarter: 2009Q1

REPORT INFORMATION
  Report Type: 
  Country: None (occurrence: None)
  Receive Date: 20090316
  Receipt Date: 20090312
  Transmission Date: 20090719
  Serious: Yes (Life-Threatening, Hospitalization)
  Sender: FDA-Public Use
  Company Number: NO-ASTRAZENECA-2009SE01106

PATIENT
  Age: 75 Year
  Sex: Female

DRUGS (3)
  1. QUETIAPINE FUMARATE [Suspect]
     Indication: PSYCHOTIC DISORDER
     Dosage: DOSE INCREASED DURING HOSPITALISATION.
     Route: 048
     Dates: start: 20090101, end: 20090209
  2. SIMVASTATIN [Concomitant]
     Indication: HYPERCHOLESTEROLAEMIA
     Route: 048
     Dates: end: 20090204
  3. LITHIUM CARBONATE [Concomitant]
     Indication: PSYCHOTIC DISORDER
     Dosage: DOSE INCREASED DURING HOSPITALISATION.
     Route: 048
     Dates: start: 20090101, end: 20090101

REACTIONS (5)
  - ACUTE HEPATIC FAILURE [None]
  - DIARRHOEA [None]
  - GENERAL PHYSICAL HEALTH DETERIORATION [None]
  - PYREXIA [None]
  - RASH MACULAR [None]
